FAERS Safety Report 22235619 (Version 4)
Quarter: 2025Q1

REPORT INFORMATION
  Report Type: Report from Study
  Country: US (occurrence: US)
  Receive Date: 20230420
  Receipt Date: 20250219
  Transmission Date: 20250408
  Serious: Yes (Other)
  Sender: TAKEDA
  Company Number: US-BAXTER-2015BAX032624

PATIENT
  Sex: Female
  Weight: 60 kg

DRUGS (18)
  1. HUMAN IMMUNOGLOBULIN G [Suspect]
     Active Substance: HUMAN IMMUNOGLOBULIN G
     Indication: Congenital hypogammaglobulinaemia
  2. HUMAN IMMUNOGLOBULIN G [Suspect]
     Active Substance: HUMAN IMMUNOGLOBULIN G
  3. HUMAN IMMUNOGLOBULIN G [Suspect]
     Active Substance: HUMAN IMMUNOGLOBULIN G
     Dosage: 10 GRAM, 1/WEEK
     Dates: start: 20121219
  4. HIZENTRA [Suspect]
     Active Substance: HUMAN IMMUNOGLOBULIN G
     Indication: Product used for unknown indication
  5. DIPHENHYDRAMINE [Concomitant]
     Active Substance: DIPHENHYDRAMINE
  6. EPINEPHRINE [Concomitant]
     Active Substance: EPINEPHRINE
  7. FISH OIL [Concomitant]
     Active Substance: FISH OIL
  8. CALCIUM\CHOLECALCIFEROL [Concomitant]
     Active Substance: CALCIUM\CHOLECALCIFEROL
  9. VITAMIN D3 [Concomitant]
     Active Substance: CHOLECALCIFEROL
  10. SINGULAIR [Concomitant]
     Active Substance: MONTELUKAST SODIUM
  11. LYSINE [Concomitant]
     Active Substance: LYSINE
  12. Zinc lozenges [Concomitant]
  13. OCUVITE [Concomitant]
     Active Substance: VITAMINS
  14. LIPITOR [Concomitant]
     Active Substance: ATORVASTATIN CALCIUM
  15. SYMBICORT [Concomitant]
     Active Substance: BUDESONIDE\FORMOTEROL FUMARATE DIHYDRATE
  16. COENZYME Q10 [Concomitant]
     Active Substance: DIETARY SUPPLEMENT\UBIDECARENONE
  17. DIPHENHYDRAMINE HYDROCHLORIDE [Concomitant]
     Active Substance: DIPHENHYDRAMINE HYDROCHLORIDE
  18. FASENRA [Concomitant]
     Active Substance: BENRALIZUMAB

REACTIONS (8)
  - Infection [Unknown]
  - Cerebral haemorrhage [Recovered/Resolved]
  - Renal disorder [Unknown]
  - Meningitis aseptic [Unknown]
  - Sensation of foreign body [Unknown]
  - Throat irritation [Unknown]
  - Respiratory tract congestion [Unknown]
  - Cough [Unknown]

NARRATIVE: CASE EVENT DATE: 20060101
